FAERS Safety Report 26021146 (Version 2)
Quarter: 2025Q4

REPORT INFORMATION
  Report Type: Spontaneous
  Country: AU (occurrence: AU)
  Receive Date: 20251110
  Receipt Date: 20251203
  Transmission Date: 20260118
  Serious: Yes (Other)
  Sender: CSL BEHRING
  Company Number: AU-BEH-2025225095

PATIENT
  Sex: Male

DRUGS (1)
  1. HUMAN RHO(D) IMMUNE GLOBULIN [Suspect]
     Active Substance: HUMAN RHO(D) IMMUNE GLOBULIN
     Route: 064

REACTIONS (10)
  - Alloimmune haemolytic anaemia [Unknown]
  - Haemoglobin decreased [Unknown]
  - Coombs direct test positive [Unknown]
  - Hyperbilirubinaemia neonatal [Unknown]
  - Polychromasia [Unknown]
  - Jaundice neonatal [Unknown]
  - Reticulocytosis [Unknown]
  - Spherocytic anaemia [Unknown]
  - Erythroblastosis [Unknown]
  - Foetal exposure during pregnancy [Unknown]
